FAERS Safety Report 24165170 (Version 3)
Quarter: 2025Q2

REPORT INFORMATION
  Report Type: Spontaneous
  Country: CA (occurrence: CA)
  Receive Date: 20240802
  Receipt Date: 20250625
  Transmission Date: 20250717
  Serious: Yes (Death, Life-Threatening, Hospitalization, Disabling, Congenital Anomaly, Other)
  Sender: Haleon PLC
  Company Number: CA-GLAXOSMITHKLINE-CA2015187246

PATIENT
  Age: 43 Year
  Sex: Female
  Weight: 96 kg

DRUGS (544)
  1. VOLTAREN [Suspect]
     Active Substance: DICLOFENAC SODIUM
     Indication: Product used for unknown indication
  2. CALTRATE [Suspect]
     Active Substance: CALCIUM CARBONATE
     Indication: Product used for unknown indication
  3. CALTRATE [Suspect]
     Active Substance: CALCIUM CARBONATE
  4. AIMOVIG [Suspect]
     Active Substance: ERENUMAB-AOOE
     Indication: Migraine
  5. SARILUMAB [Suspect]
     Active Substance: SARILUMAB
     Indication: Rheumatoid arthritis
  6. PREGABALIN [Suspect]
     Active Substance: PREGABALIN
     Indication: Fibromyalgia
  7. PREDNISONE [Suspect]
     Active Substance: PREDNISONE
     Indication: Rheumatoid arthritis
     Route: 048
  8. LEFLUNOMIDE [Suspect]
     Active Substance: LEFLUNOMIDE
     Indication: Rheumatoid arthritis
     Route: 048
  9. LEFLUNOMIDE [Suspect]
     Active Substance: LEFLUNOMIDE
     Route: 048
  10. LEFLUNOMIDE [Suspect]
     Active Substance: LEFLUNOMIDE
  11. LEFLUNOMIDE [Suspect]
     Active Substance: LEFLUNOMIDE
  12. CANDESARTAN [Suspect]
     Active Substance: CANDESARTAN
     Indication: Migraine
     Route: 050
  13. CETIRIZINE HYDROCHLORIDE\PSEUDOEPHEDRINE HYDROCHLORIDE [Suspect]
     Active Substance: CETIRIZINE HYDROCHLORIDE\PSEUDOEPHEDRINE HYDROCHLORIDE
     Indication: Rheumatoid arthritis
  14. SIMPONI [Suspect]
     Active Substance: GOLIMUMAB
     Indication: Rheumatoid arthritis
     Route: 058
  15. SIMPONI [Suspect]
     Active Substance: GOLIMUMAB
     Route: 058
  16. SIMPONI [Suspect]
     Active Substance: GOLIMUMAB
     Route: 058
  17. SIMPONI [Suspect]
     Active Substance: GOLIMUMAB
     Route: 058
  18. SIMPONI [Suspect]
     Active Substance: GOLIMUMAB
  19. SIMPONI [Suspect]
     Active Substance: GOLIMUMAB
     Route: 058
  20. SIMPONI [Suspect]
     Active Substance: GOLIMUMAB
  21. ALENDRONATE SODIUM\CHOLECALCIFEROL [Suspect]
     Active Substance: ALENDRONATE SODIUM\CHOLECALCIFEROL
     Indication: Rheumatoid arthritis
     Route: 048
  22. TOCILIZUMAB [Suspect]
     Active Substance: TOCILIZUMAB
     Indication: Rheumatoid arthritis
  23. TOCILIZUMAB [Suspect]
     Active Substance: TOCILIZUMAB
     Route: 058
  24. TOCILIZUMAB [Suspect]
     Active Substance: TOCILIZUMAB
  25. TOCILIZUMAB [Suspect]
     Active Substance: TOCILIZUMAB
  26. TOCILIZUMAB [Suspect]
     Active Substance: TOCILIZUMAB
  27. CERTOLIZUMAB PEGOL [Suspect]
     Active Substance: CERTOLIZUMAB PEGOL
     Indication: Rheumatoid arthritis
     Route: 058
  28. ORENCIA [Suspect]
     Active Substance: ABATACEPT
     Indication: Rheumatoid arthritis
     Route: 042
  29. ORENCIA [Suspect]
     Active Substance: ABATACEPT
     Route: 042
  30. ORENCIA [Suspect]
     Active Substance: ABATACEPT
     Route: 058
  31. ORENCIA [Suspect]
     Active Substance: ABATACEPT
  32. ORENCIA [Suspect]
     Active Substance: ABATACEPT
     Route: 058
  33. ORENCIA [Suspect]
     Active Substance: ABATACEPT
     Route: 058
  34. ORENCIA [Suspect]
     Active Substance: ABATACEPT
     Route: 042
  35. ORENCIA [Suspect]
     Active Substance: ABATACEPT
     Route: 042
  36. CETIRIZINE HYDROCHLORIDE [Suspect]
     Active Substance: CETIRIZINE HYDROCHLORIDE
     Indication: Rheumatoid arthritis
  37. CETIRIZINE HYDROCHLORIDE [Suspect]
     Active Substance: CETIRIZINE HYDROCHLORIDE
  38. CETIRIZINE HYDROCHLORIDE [Suspect]
     Active Substance: CETIRIZINE HYDROCHLORIDE
  39. DICLOFENAC POTASSIUM [Suspect]
     Active Substance: DICLOFENAC POTASSIUM
     Indication: Product used for unknown indication
  40. DICLOFENAC POTASSIUM [Suspect]
     Active Substance: DICLOFENAC POTASSIUM
  41. DICLOFENAC POTASSIUM [Suspect]
     Active Substance: DICLOFENAC POTASSIUM
     Route: 048
  42. XELJANZ [Suspect]
     Active Substance: TOFACITINIB CITRATE
     Indication: Rheumatoid arthritis
     Dosage: 5 MG, BID (1 EVERY 12 HOURS)
  43. XELJANZ [Suspect]
     Active Substance: TOFACITINIB CITRATE
  44. XELJANZ [Suspect]
     Active Substance: TOFACITINIB CITRATE
  45. XELJANZ [Suspect]
     Active Substance: TOFACITINIB CITRATE
  46. XELJANZ [Suspect]
     Active Substance: TOFACITINIB CITRATE
  47. XELJANZ [Suspect]
     Active Substance: TOFACITINIB CITRATE
  48. XELJANZ [Suspect]
     Active Substance: TOFACITINIB CITRATE
  49. XELJANZ [Suspect]
     Active Substance: TOFACITINIB CITRATE
     Route: 048
  50. TOPICORT [Suspect]
     Active Substance: DESOXIMETASONE
     Indication: Rheumatoid arthritis
     Route: 058
  51. TOPICORT [Suspect]
     Active Substance: DESOXIMETASONE
     Route: 003
  52. TOPICORT [Suspect]
     Active Substance: DESOXIMETASONE
  53. TOPICORT [Suspect]
     Active Substance: DESOXIMETASONE
     Route: 058
  54. TOPICORT [Suspect]
     Active Substance: DESOXIMETASONE
     Route: 048
  55. HYDROXYCHLOROQUINE [Suspect]
     Active Substance: HYDROXYCHLOROQUINE
     Indication: Rheumatoid arthritis
  56. HYDROXYCHLOROQUINE [Suspect]
     Active Substance: HYDROXYCHLOROQUINE
     Route: 048
  57. HYDROXYCHLOROQUINE [Suspect]
     Active Substance: HYDROXYCHLOROQUINE
     Route: 048
  58. HYDROXYCHLOROQUINE [Suspect]
     Active Substance: HYDROXYCHLOROQUINE
     Route: 048
  59. HYDROXYCHLOROQUINE [Suspect]
     Active Substance: HYDROXYCHLOROQUINE
     Route: 048
  60. HYDROXYCHLOROQUINE [Suspect]
     Active Substance: HYDROXYCHLOROQUINE
  61. HYDROXYCHLOROQUINE [Suspect]
     Active Substance: HYDROXYCHLOROQUINE
     Route: 048
  62. RITUXIMAB [Suspect]
     Active Substance: RITUXIMAB
     Indication: Rheumatoid arthritis
     Route: 050
  63. RITUXIMAB [Suspect]
     Active Substance: RITUXIMAB
     Indication: Product used for unknown indication
     Route: 042
  64. RITUXIMAB [Suspect]
     Active Substance: RITUXIMAB
  65. RITUXIMAB [Suspect]
     Active Substance: RITUXIMAB
     Route: 042
  66. RITUXIMAB [Suspect]
     Active Substance: RITUXIMAB
     Route: 050
  67. RITUXIMAB [Suspect]
     Active Substance: RITUXIMAB
     Route: 042
  68. RITUXIMAB [Suspect]
     Active Substance: RITUXIMAB
  69. RITUXIMAB [Suspect]
     Active Substance: RITUXIMAB
  70. RITUXIMAB [Suspect]
     Active Substance: RITUXIMAB
     Route: 050
  71. RITUXIMAB [Suspect]
     Active Substance: RITUXIMAB
     Dosage: 2 G, QD
     Route: 050
  72. RITUXIMAB [Suspect]
     Active Substance: RITUXIMAB
     Route: 050
  73. RITUXIMAB [Suspect]
     Active Substance: RITUXIMAB
  74. RITUXIMAB [Suspect]
     Active Substance: RITUXIMAB
     Route: 050
  75. RITUXIMAB [Suspect]
     Active Substance: RITUXIMAB
  76. RITUXIMAB [Suspect]
     Active Substance: RITUXIMAB
  77. RITUXIMAB [Suspect]
     Active Substance: RITUXIMAB
     Route: 050
  78. RITUXIMAB [Suspect]
     Active Substance: RITUXIMAB
  79. RITUXIMAB [Suspect]
     Active Substance: RITUXIMAB
     Dosage: 2000 MG, QD
  80. RITUXIMAB [Suspect]
     Active Substance: RITUXIMAB
  81. VITAMIN C [Suspect]
     Active Substance: ASCORBIC ACID
     Indication: Product used for unknown indication
  82. LEFLUNOMIDE [Suspect]
     Active Substance: LEFLUNOMIDE
     Indication: Rheumatoid arthritis
     Route: 048
  83. LEFLUNOMIDE [Suspect]
     Active Substance: LEFLUNOMIDE
  84. REMICADE [Suspect]
     Active Substance: INFLIXIMAB
     Indication: Product used for unknown indication
     Route: 042
  85. REMICADE [Suspect]
     Active Substance: INFLIXIMAB
  86. PSEUDOEPHEDRINE HYDROCHLORIDE [Suspect]
     Active Substance: PSEUDOEPHEDRINE HYDROCHLORIDE
     Indication: Rheumatoid arthritis
  87. PSEUDOEPHEDRINE HYDROCHLORIDE [Suspect]
     Active Substance: PSEUDOEPHEDRINE HYDROCHLORIDE
  88. PSEUDOEPHEDRINE HYDROCHLORIDE [Suspect]
     Active Substance: PSEUDOEPHEDRINE HYDROCHLORIDE
     Dosage: 25 MG, QD
  89. PSEUDOEPHEDRINE HYDROCHLORIDE [Suspect]
     Active Substance: PSEUDOEPHEDRINE HYDROCHLORIDE
     Route: 048
  90. FOLIC ACID [Suspect]
     Active Substance: FOLIC ACID
     Indication: Product used for unknown indication
  91. CETIRIZINE HYDROCHLORIDE [Suspect]
     Active Substance: CETIRIZINE HYDROCHLORIDE
     Indication: Rheumatoid arthritis
  92. CETIRIZINE HYDROCHLORIDE [Suspect]
     Active Substance: CETIRIZINE HYDROCHLORIDE
     Route: 016
  93. HYDROCORTISONE ACETATE [Suspect]
     Active Substance: HYDROCORTISONE ACETATE
     Indication: Rheumatoid arthritis
  94. HYDROCORTISONE ACETATE [Suspect]
     Active Substance: HYDROCORTISONE ACETATE
     Route: 048
  95. HYDROCORTISONE ACETATE [Suspect]
     Active Substance: HYDROCORTISONE ACETATE
  96. HYDROCORTISONE ACETATE [Suspect]
     Active Substance: HYDROCORTISONE ACETATE
     Route: 058
  97. HYDROCORTISONE ACETATE [Suspect]
     Active Substance: HYDROCORTISONE ACETATE
     Route: 048
  98. HYDROCORTISONE ACETATE [Suspect]
     Active Substance: HYDROCORTISONE ACETATE
  99. HYDROCORTISONE ACETATE [Suspect]
     Active Substance: HYDROCORTISONE ACETATE
  100. HYDROCORTISONE [Suspect]
     Active Substance: HYDROCORTISONE
     Indication: Rheumatoid arthritis
  101. HYDROCORTISONE [Suspect]
     Active Substance: HYDROCORTISONE
     Route: 058
  102. HYDROCORTISONE [Suspect]
     Active Substance: HYDROCORTISONE
     Route: 003
  103. HYDROCORTISONE [Suspect]
     Active Substance: HYDROCORTISONE
  104. HYDROCORTISONE [Suspect]
     Active Substance: HYDROCORTISONE
     Route: 003
  105. HYDROCORTISONE [Suspect]
     Active Substance: HYDROCORTISONE
     Route: 058
  106. HYDROCORTISONE [Suspect]
     Active Substance: HYDROCORTISONE
  107. HYDROCORTISONE [Suspect]
     Active Substance: HYDROCORTISONE
     Route: 048
  108. HYDROCORTISONE [Suspect]
     Active Substance: HYDROCORTISONE
  109. SALAZOPYRINE [Suspect]
     Active Substance: SULFASALAZINE
     Indication: Product used for unknown indication
  110. ADALIMUMAB [Suspect]
     Active Substance: ADALIMUMAB
     Indication: Rheumatoid arthritis
     Route: 050
  111. ADALIMUMAB [Suspect]
     Active Substance: ADALIMUMAB
  112. ADALIMUMAB [Suspect]
     Active Substance: ADALIMUMAB
     Route: 050
  113. ADALIMUMAB [Suspect]
     Active Substance: ADALIMUMAB
  114. ADALIMUMAB [Suspect]
     Active Substance: ADALIMUMAB
     Route: 050
  115. ADALIMUMAB [Suspect]
     Active Substance: ADALIMUMAB
  116. ADALIMUMAB [Suspect]
     Active Substance: ADALIMUMAB
  117. ADALIMUMAB [Suspect]
     Active Substance: ADALIMUMAB
     Route: 050
  118. ERELZI [Suspect]
     Active Substance: ETANERCEPT-SZZS
     Indication: Rheumatoid arthritis
     Route: 050
  119. ERELZI [Suspect]
     Active Substance: ETANERCEPT-SZZS
     Route: 058
  120. ERELZI [Suspect]
     Active Substance: ETANERCEPT-SZZS
     Route: 050
  121. ERELZI [Suspect]
     Active Substance: ETANERCEPT-SZZS
  122. ERELZI [Suspect]
     Active Substance: ETANERCEPT-SZZS
  123. ERELZI [Suspect]
     Active Substance: ETANERCEPT-SZZS
  124. ERELZI [Suspect]
     Active Substance: ETANERCEPT-SZZS
     Route: 058
  125. ERELZI [Suspect]
     Active Substance: ETANERCEPT-SZZS
     Dosage: 50 MG
     Route: 058
  126. ERELZI [Suspect]
     Active Substance: ETANERCEPT-SZZS
  127. ERELZI [Suspect]
     Active Substance: ETANERCEPT-SZZS
  128. ERELZI [Suspect]
     Active Substance: ETANERCEPT-SZZS
     Route: 058
  129. CETIRIZINE HYDROCHLORIDE\PSEUDOEPHEDRINE HYDROCHLORIDE [Suspect]
     Active Substance: CETIRIZINE HYDROCHLORIDE\PSEUDOEPHEDRINE HYDROCHLORIDE
     Indication: Product used for unknown indication
  130. COSENTYX [Suspect]
     Active Substance: SECUKINUMAB
     Indication: Psoriatic arthropathy
  131. COSENTYX [Suspect]
     Active Substance: SECUKINUMAB
     Indication: Rheumatoid arthritis
  132. COSENTYX [Suspect]
     Active Substance: SECUKINUMAB
  133. COSENTYX [Suspect]
     Active Substance: SECUKINUMAB
  134. COSENTYX [Suspect]
     Active Substance: SECUKINUMAB
     Route: 005
  135. CIMZIA [Suspect]
     Active Substance: CERTOLIZUMAB PEGOL
     Indication: Psoriasis
     Route: 058
  136. CIMZIA [Suspect]
     Active Substance: CERTOLIZUMAB PEGOL
     Indication: Rheumatoid arthritis
     Route: 005
  137. CIMZIA [Suspect]
     Active Substance: CERTOLIZUMAB PEGOL
     Indication: Psoriatic arthropathy
     Route: 042
  138. ORENCIA [Suspect]
     Active Substance: ABATACEPT
     Indication: Product used for unknown indication
     Route: 058
  139. ORENCIA [Suspect]
     Active Substance: ABATACEPT
     Route: 042
  140. ORENCIA [Suspect]
     Active Substance: ABATACEPT
     Route: 058
  141. ORENCIA [Suspect]
     Active Substance: ABATACEPT
     Route: 042
  142. ORENCIA [Suspect]
     Active Substance: ABATACEPT
     Route: 042
  143. ORENCIA [Suspect]
     Active Substance: ABATACEPT
     Route: 042
  144. ORENCIA [Suspect]
     Active Substance: ABATACEPT
     Route: 058
  145. ORENCIA [Suspect]
     Active Substance: ABATACEPT
     Route: 042
  146. ORENCIA [Suspect]
     Active Substance: ABATACEPT
     Route: 042
  147. ORENCIA [Suspect]
     Active Substance: ABATACEPT
     Route: 042
  148. ORENCIA [Suspect]
     Active Substance: ABATACEPT
     Route: 058
  149. ALENDRONIC ACID [Suspect]
     Active Substance: ALENDRONIC ACID
     Indication: Rheumatoid arthritis
     Route: 050
  150. ALENDRONIC ACID [Suspect]
     Active Substance: ALENDRONIC ACID
     Route: 048
  151. ALENDRONIC ACID [Suspect]
     Active Substance: ALENDRONIC ACID
     Route: 048
  152. ALENDRONIC ACID [Suspect]
     Active Substance: ALENDRONIC ACID
  153. RITUXAN [Suspect]
     Active Substance: RITUXIMAB
     Indication: Rheumatoid arthritis
     Route: 042
     Dates: start: 2009, end: 2010
  154. RITUXAN [Suspect]
     Active Substance: RITUXIMAB
  155. RITUXAN [Suspect]
     Active Substance: RITUXIMAB
  156. ARAVA [Suspect]
     Active Substance: LEFLUNOMIDE
     Indication: Rheumatoid arthritis
     Route: 048
  157. ARAVA [Suspect]
     Active Substance: LEFLUNOMIDE
  158. ARAVA [Suspect]
     Active Substance: LEFLUNOMIDE
  159. ARAVA [Suspect]
     Active Substance: LEFLUNOMIDE
     Route: 048
  160. ARAVA [Suspect]
     Active Substance: LEFLUNOMIDE
  161. ARAVA [Suspect]
     Active Substance: LEFLUNOMIDE
     Route: 048
  162. DICLOFENAC DIETHYLAMINE [Suspect]
     Active Substance: DICLOFENAC DIETHYLAMINE
     Indication: Product used for unknown indication
  163. HYDROXYCHLOROQUINE SULFATE [Suspect]
     Active Substance: HYDROXYCHLOROQUINE SULFATE
     Indication: Rheumatoid arthritis
     Route: 048
  164. HYDROXYCHLOROQUINE SULFATE [Suspect]
     Active Substance: HYDROXYCHLOROQUINE SULFATE
     Dosage: 400 MG, QD
     Route: 048
  165. HYDROXYCHLOROQUINE SULFATE [Suspect]
     Active Substance: HYDROXYCHLOROQUINE SULFATE
  166. HYDROXYCHLOROQUINE SULFATE [Suspect]
     Active Substance: HYDROXYCHLOROQUINE SULFATE
     Dosage: 40 MG, QD
  167. HYDROXYCHLOROQUINE SULFATE [Suspect]
     Active Substance: HYDROXYCHLOROQUINE SULFATE
     Dosage: 400 MG, QD
     Route: 058
  168. HYDROXYCHLOROQUINE SULFATE [Suspect]
     Active Substance: HYDROXYCHLOROQUINE SULFATE
     Route: 016
  169. HYDROXYCHLOROQUINE SULFATE [Suspect]
     Active Substance: HYDROXYCHLOROQUINE SULFATE
     Dosage: 400 MG, QD
     Route: 066
  170. HYDROXYCHLOROQUINE SULFATE [Suspect]
     Active Substance: HYDROXYCHLOROQUINE SULFATE
  171. HYDROXYCHLOROQUINE SULFATE [Suspect]
     Active Substance: HYDROXYCHLOROQUINE SULFATE
  172. HYDROXYCHLOROQUINE SULFATE [Suspect]
     Active Substance: HYDROXYCHLOROQUINE SULFATE
     Dosage: 400 MG, QD (1 EVERY 1 DAY)
  173. HYDROXYCHLOROQUINE SULFATE [Suspect]
     Active Substance: HYDROXYCHLOROQUINE SULFATE
     Route: 048
  174. HYDROXYCHLOROQUINE SULFATE [Suspect]
     Active Substance: HYDROXYCHLOROQUINE SULFATE
     Route: 048
  175. HYDROXYCHLOROQUINE SULFATE [Suspect]
     Active Substance: HYDROXYCHLOROQUINE SULFATE
     Route: 048
  176. HYDROXYCHLOROQUINE SULFATE [Suspect]
     Active Substance: HYDROXYCHLOROQUINE SULFATE
     Dosage: 400 MG, QD (1 EVERY 1 DAY)
     Route: 048
  177. HYDROXYCHLOROQUINE SULFATE [Suspect]
     Active Substance: HYDROXYCHLOROQUINE SULFATE
     Route: 048
  178. HYDROXYCHLOROQUINE SULFATE [Suspect]
     Active Substance: HYDROXYCHLOROQUINE SULFATE
  179. HYDROXYCHLOROQUINE SULFATE [Suspect]
     Active Substance: HYDROXYCHLOROQUINE SULFATE
     Route: 048
  180. HYDROXYCHLOROQUINE SULFATE [Suspect]
     Active Substance: HYDROXYCHLOROQUINE SULFATE
     Dosage: UNK UNK, QD
     Route: 048
  181. METHOTREXATE SODIUM [Suspect]
     Active Substance: METHOTREXATE SODIUM
     Indication: Rheumatoid arthritis
     Route: 048
  182. REMICADE [Suspect]
     Active Substance: INFLIXIMAB
     Indication: Rheumatoid arthritis
  183. REMICADE [Suspect]
     Active Substance: INFLIXIMAB
     Route: 042
  184. REMICADE [Suspect]
     Active Substance: INFLIXIMAB
     Route: 042
  185. REMICADE [Suspect]
     Active Substance: INFLIXIMAB
     Route: 058
  186. REMICADE [Suspect]
     Active Substance: INFLIXIMAB
  187. REMICADE [Suspect]
     Active Substance: INFLIXIMAB
  188. SULFASALAZINE [Suspect]
     Active Substance: SULFASALAZINE
     Indication: Rheumatoid arthritis
     Dosage: 2 G, QD
     Route: 048
  189. SULFASALAZINE [Suspect]
     Active Substance: SULFASALAZINE
     Indication: Psoriatic arthropathy
     Dosage: 1000 MG, BID
     Route: 048
  190. SULFASALAZINE [Suspect]
     Active Substance: SULFASALAZINE
     Route: 048
  191. SULFASALAZINE [Suspect]
     Active Substance: SULFASALAZINE
  192. SULFASALAZINE [Suspect]
     Active Substance: SULFASALAZINE
     Route: 048
  193. SULFASALAZINE [Suspect]
     Active Substance: SULFASALAZINE
     Dosage: 300 MG, QD
     Route: 048
  194. SULFASALAZINE [Suspect]
     Active Substance: SULFASALAZINE
  195. SULFASALAZINE [Suspect]
     Active Substance: SULFASALAZINE
  196. SULFASALAZINE [Suspect]
     Active Substance: SULFASALAZINE
     Dosage: 1500 MG, BID
  197. SULFASALAZINE [Suspect]
     Active Substance: SULFASALAZINE
     Dosage: 1 DF, BID
     Route: 048
  198. SULFASALAZINE [Suspect]
     Active Substance: SULFASALAZINE
     Dosage: 300 MG, QD
  199. SULFASALAZINE [Suspect]
     Active Substance: SULFASALAZINE
     Dosage: 1 G, QD
     Route: 048
  200. SULFASALAZINE [Suspect]
     Active Substance: SULFASALAZINE
     Dosage: 2 G, BID
     Route: 048
  201. SULFASALAZINE [Suspect]
     Active Substance: SULFASALAZINE
     Dosage: 1 G, BID
  202. SULFASALAZINE [Suspect]
     Active Substance: SULFASALAZINE
     Route: 048
  203. SULFASALAZINE [Suspect]
     Active Substance: SULFASALAZINE
     Route: 048
  204. SULFASALAZINE [Suspect]
     Active Substance: SULFASALAZINE
  205. SULFASALAZINE [Suspect]
     Active Substance: SULFASALAZINE
     Dosage: 1 G, BID
     Route: 048
  206. SULFASALAZINE [Suspect]
     Active Substance: SULFASALAZINE
     Dosage: UNK UNK, BID
     Route: 048
  207. SULFASALAZINE [Suspect]
     Active Substance: SULFASALAZINE
     Dosage: 1 DF, BID
     Route: 048
  208. SULFASALAZINE [Suspect]
     Active Substance: SULFASALAZINE
     Dosage: 1 G, BID
     Route: 058
  209. SULFASALAZINE [Suspect]
     Active Substance: SULFASALAZINE
     Dosage: 2 G, QD
  210. SULFASALAZINE [Suspect]
     Active Substance: SULFASALAZINE
     Dosage: 300 MG, QD
  211. SULFASALAZINE [Suspect]
     Active Substance: SULFASALAZINE
     Route: 048
  212. SULFASALAZINE [Suspect]
     Active Substance: SULFASALAZINE
  213. SULFASALAZINE [Suspect]
     Active Substance: SULFASALAZINE
     Dosage: 2 G, QD
     Route: 048
  214. SULFASALAZINE [Suspect]
     Active Substance: SULFASALAZINE
     Dosage: 1 DF, BID
     Route: 048
  215. SULFASALAZINE [Suspect]
     Active Substance: SULFASALAZINE
     Dosage: 2 G, QD
     Route: 048
  216. SULFASALAZINE [Suspect]
     Active Substance: SULFASALAZINE
     Dosage: 1500 MG, BID
  217. SULFASALAZINE [Suspect]
     Active Substance: SULFASALAZINE
     Route: 048
  218. SULFASALAZINE [Suspect]
     Active Substance: SULFASALAZINE
     Route: 048
     Dates: start: 2006, end: 2007
  219. SULFASALAZINE [Suspect]
     Active Substance: SULFASALAZINE
     Dosage: 1000 MG, BID
     Route: 048
  220. SULFASALAZINE [Suspect]
     Active Substance: SULFASALAZINE
  221. SULFASALAZINE [Suspect]
     Active Substance: SULFASALAZINE
     Dosage: 1 G, BID
     Route: 048
  222. SULFASALAZINE [Suspect]
     Active Substance: SULFASALAZINE
     Dosage: UNK UNK, BID
     Route: 048
  223. SULFASALAZINE [Suspect]
     Active Substance: SULFASALAZINE
     Route: 058
  224. FOSAMAX [Suspect]
     Active Substance: ALENDRONATE SODIUM
     Indication: Rheumatoid arthritis
     Route: 048
  225. FOSAMAX [Suspect]
     Active Substance: ALENDRONATE SODIUM
     Route: 005
  226. FOSAMAX [Suspect]
     Active Substance: ALENDRONATE SODIUM
     Route: 048
  227. FOSAMAX [Suspect]
     Active Substance: ALENDRONATE SODIUM
     Route: 048
  228. FOSAMAX [Suspect]
     Active Substance: ALENDRONATE SODIUM
     Route: 058
  229. FOSAMAX [Suspect]
     Active Substance: ALENDRONATE SODIUM
  230. FOSAMAX [Suspect]
     Active Substance: ALENDRONATE SODIUM
     Route: 048
  231. FOSAMAX [Suspect]
     Active Substance: ALENDRONATE SODIUM
  232. FOSAMAX [Suspect]
     Active Substance: ALENDRONATE SODIUM
  233. FOSAMAX [Suspect]
     Active Substance: ALENDRONATE SODIUM
  234. ACETAMINOPHEN [Suspect]
     Active Substance: ACETAMINOPHEN
     Indication: Rheumatoid arthritis
  235. ACETAMINOPHEN [Suspect]
     Active Substance: ACETAMINOPHEN
  236. ACETAMINOPHEN [Suspect]
     Active Substance: ACETAMINOPHEN
  237. ACTEMRA [Suspect]
     Active Substance: TOCILIZUMAB
     Indication: Rheumatoid arthritis
     Route: 058
  238. ACTEMRA [Suspect]
     Active Substance: TOCILIZUMAB
     Route: 042
  239. ACTEMRA [Suspect]
     Active Substance: TOCILIZUMAB
     Route: 058
  240. ACTEMRA [Suspect]
     Active Substance: TOCILIZUMAB
  241. ACTEMRA [Suspect]
     Active Substance: TOCILIZUMAB
  242. ACTEMRA [Suspect]
     Active Substance: TOCILIZUMAB
     Route: 048
  243. ACTEMRA [Suspect]
     Active Substance: TOCILIZUMAB
  244. ACTEMRA [Suspect]
     Active Substance: TOCILIZUMAB
     Route: 042
  245. ACTEMRA [Suspect]
     Active Substance: TOCILIZUMAB
     Route: 042
  246. ACTEMRA [Suspect]
     Active Substance: TOCILIZUMAB
  247. ACTEMRA [Suspect]
     Active Substance: TOCILIZUMAB
     Route: 048
  248. ACTEMRA [Suspect]
     Active Substance: TOCILIZUMAB
     Route: 042
  249. ACTEMRA [Suspect]
     Active Substance: TOCILIZUMAB
     Route: 048
  250. ACTEMRA [Suspect]
     Active Substance: TOCILIZUMAB
     Route: 042
  251. ACTEMRA [Suspect]
     Active Substance: TOCILIZUMAB
     Route: 016
  252. ACTEMRA [Suspect]
     Active Substance: TOCILIZUMAB
     Route: 058
  253. PREDNISONE [Suspect]
     Active Substance: PREDNISONE
     Indication: Product used for unknown indication
     Route: 048
  254. PREDNISONE [Suspect]
     Active Substance: PREDNISONE
     Indication: Condition aggravated
  255. PREDNISONE [Suspect]
     Active Substance: PREDNISONE
     Indication: Rheumatoid arthritis
     Route: 058
  256. PREDNISONE [Suspect]
     Active Substance: PREDNISONE
     Indication: Systemic lupus erythematosus
     Route: 048
  257. PREDNISONE [Suspect]
     Active Substance: PREDNISONE
  258. PREDNISONE [Suspect]
     Active Substance: PREDNISONE
     Route: 048
  259. PREDNISONE [Suspect]
     Active Substance: PREDNISONE
     Route: 048
  260. PREDNISONE [Suspect]
     Active Substance: PREDNISONE
     Route: 042
  261. PREDNISONE [Suspect]
     Active Substance: PREDNISONE
     Route: 048
  262. PREDNISONE [Suspect]
     Active Substance: PREDNISONE
     Route: 048
  263. HYDROXYCHLOROQUINE SULFATE [Suspect]
     Active Substance: HYDROXYCHLOROQUINE SULFATE
     Indication: Rheumatoid arthritis
     Dosage: 400 MG, QD
  264. METHOTREXATE [Suspect]
     Active Substance: METHOTREXATE
     Indication: Rheumatoid arthritis
  265. METHOTREXATE [Suspect]
     Active Substance: METHOTREXATE
     Indication: Product used for unknown indication
  266. METHOTREXATE [Suspect]
     Active Substance: METHOTREXATE
     Dosage: 20 MG, QD (1 EVERY 1 WEEK)
     Route: 048
  267. METHOTREXATE [Suspect]
     Active Substance: METHOTREXATE
     Dosage: 15 MG, QD
     Route: 058
  268. METHOTREXATE [Suspect]
     Active Substance: METHOTREXATE
     Route: 050
  269. METHOTREXATE [Suspect]
     Active Substance: METHOTREXATE
     Route: 058
  270. METHOTREXATE [Suspect]
     Active Substance: METHOTREXATE
     Route: 050
  271. METHOTREXATE [Suspect]
     Active Substance: METHOTREXATE
  272. METHOTREXATE [Suspect]
     Active Substance: METHOTREXATE
     Dosage: 20 MG, WE
  273. METHOTREXATE [Suspect]
     Active Substance: METHOTREXATE
     Dosage: 25 MG, QD
     Route: 048
  274. METHOTREXATE [Suspect]
     Active Substance: METHOTREXATE
     Dosage: 25 MG, QD (1 EVERY 1 DAY) (NOT SPECIFIED)
  275. METHOTREXATE [Suspect]
     Active Substance: METHOTREXATE
     Dosage: 20 MG, QD
     Route: 048
  276. METHOTREXATE [Suspect]
     Active Substance: METHOTREXATE
     Dosage: 25 MG, WE
     Route: 048
  277. METHOTREXATE [Suspect]
     Active Substance: METHOTREXATE
     Dosage: 25 MG, WE,PARENTERAL
  278. METHOTREXATE [Suspect]
     Active Substance: METHOTREXATE
     Dosage: 20 MG, WE
     Route: 058
  279. METHOTREXATE [Suspect]
     Active Substance: METHOTREXATE
     Dosage: 15 MG, QD (1 EVERY 1 DAY)
     Route: 048
  280. METHOTREXATE [Suspect]
     Active Substance: METHOTREXATE
     Dosage: 25 MG, QD,INTRA-ARTERIAL ROUTE
  281. METHOTREXATE [Suspect]
     Active Substance: METHOTREXATE
     Dosage: 1 G, Q12H
     Route: 050
  282. METHOTREXATE [Suspect]
     Active Substance: METHOTREXATE
     Dosage: UNK UNK, QD
     Route: 048
  283. METHOTREXATE [Suspect]
     Active Substance: METHOTREXATE
     Dosage: 20 MG, QD
  284. METHOTREXATE [Suspect]
     Active Substance: METHOTREXATE
     Route: 048
  285. METHOTREXATE [Suspect]
     Active Substance: METHOTREXATE
     Dosage: 25 MG, WE
     Route: 058
  286. METHOTREXATE [Suspect]
     Active Substance: METHOTREXATE
     Dosage: 25 MG, WE,INTRA-ARTERIAL
  287. METHOTREXATE [Suspect]
     Active Substance: METHOTREXATE
     Dosage: 20 MG, WE
  288. METHOTREXATE [Suspect]
     Active Substance: METHOTREXATE
     Route: 058
  289. METHOTREXATE [Suspect]
     Active Substance: METHOTREXATE
     Route: 058
  290. METHOTREXATE [Suspect]
     Active Substance: METHOTREXATE
     Dosage: 25 MG, WE (1 EVERY 1 WEEK),INTRA-ARTERIAL
  291. METHOTREXATE [Suspect]
     Active Substance: METHOTREXATE
     Dosage: 1 G, BID
     Route: 048
  292. METHOTREXATE [Suspect]
     Active Substance: METHOTREXATE
     Dosage: 15 MG, WE
     Route: 048
  293. METHOTREXATE [Suspect]
     Active Substance: METHOTREXATE
     Dosage: 25 MG
     Route: 048
  294. METHOTREXATE [Suspect]
     Active Substance: METHOTREXATE
     Dosage: 25 MG, QD
     Route: 048
  295. METHOTREXATE [Suspect]
     Active Substance: METHOTREXATE
     Dosage: 2 G, QD
     Route: 048
  296. METHOTREXATE [Suspect]
     Active Substance: METHOTREXATE
     Route: 048
  297. METHOTREXATE [Suspect]
     Active Substance: METHOTREXATE
     Dosage: 1 G, Q24H
     Route: 050
  298. METHOTREXATE [Suspect]
     Active Substance: METHOTREXATE
  299. METHOTREXATE [Suspect]
     Active Substance: METHOTREXATE
     Dosage: 1 DF, QD
     Route: 048
  300. METHOTREXATE [Suspect]
     Active Substance: METHOTREXATE
  301. METHOTREXATE [Suspect]
     Active Substance: METHOTREXATE
     Dosage: 2 G, QD
  302. METHOTREXATE [Suspect]
     Active Substance: METHOTREXATE
     Dosage: 1 G, Q24H
     Route: 050
  303. METHOTREXATE [Suspect]
     Active Substance: METHOTREXATE
     Route: 048
  304. METHOTREXATE [Suspect]
     Active Substance: METHOTREXATE
     Route: 048
  305. METHOTREXATE [Suspect]
     Active Substance: METHOTREXATE
     Route: 050
  306. METHOTREXATE [Suspect]
     Active Substance: METHOTREXATE
  307. METHOTREXATE [Suspect]
     Active Substance: METHOTREXATE
     Dosage: 15 MG, WE
  308. METHOTREXATE [Suspect]
     Active Substance: METHOTREXATE
  309. METHOTREXATE [Suspect]
     Active Substance: METHOTREXATE
  310. PLAQUENIL [Suspect]
     Active Substance: HYDROXYCHLOROQUINE SULFATE
     Indication: Rheumatoid arthritis
  311. PLAQUENIL [Suspect]
     Active Substance: HYDROXYCHLOROQUINE SULFATE
     Route: 005
  312. PLAQUENIL [Suspect]
     Active Substance: HYDROXYCHLOROQUINE SULFATE
  313. PLAQUENIL [Suspect]
     Active Substance: HYDROXYCHLOROQUINE SULFATE
  314. PLAQUENIL [Suspect]
     Active Substance: HYDROXYCHLOROQUINE SULFATE
  315. PLAQUENIL [Suspect]
     Active Substance: HYDROXYCHLOROQUINE SULFATE
  316. PLAQUENIL [Suspect]
     Active Substance: HYDROXYCHLOROQUINE SULFATE
     Dosage: 400 MG, QD
     Route: 048
     Dates: start: 2006
  317. PLAQUENIL [Suspect]
     Active Substance: HYDROXYCHLOROQUINE SULFATE
  318. PLAQUENIL [Suspect]
     Active Substance: HYDROXYCHLOROQUINE SULFATE
  319. PLAQUENIL [Suspect]
     Active Substance: HYDROXYCHLOROQUINE SULFATE
  320. PLAQUENIL [Suspect]
     Active Substance: HYDROXYCHLOROQUINE SULFATE
     Dosage: UNK, QD
     Route: 048
  321. ETANERCEPT [Suspect]
     Active Substance: ETANERCEPT
     Indication: Product used for unknown indication
  322. CORTISONE ACETATE [Suspect]
     Active Substance: CORTISONE ACETATE
     Indication: Rheumatoid arthritis
  323. CORTISONE ACETATE [Suspect]
     Active Substance: CORTISONE ACETATE
     Route: 048
  324. CORTISONE ACETATE [Suspect]
     Active Substance: CORTISONE ACETATE
  325. CORTISONE ACETATE [Suspect]
     Active Substance: CORTISONE ACETATE
  326. CORTISONE ACETATE [Suspect]
     Active Substance: CORTISONE ACETATE
     Route: 048
  327. CORTISONE ACETATE [Suspect]
     Active Substance: CORTISONE ACETATE
  328. CORTISONE ACETATE [Suspect]
     Active Substance: CORTISONE ACETATE
     Route: 048
  329. CELEBREX [Suspect]
     Active Substance: CELECOXIB
     Indication: Product used for unknown indication
     Dosage: 2 DF, QD
     Route: 048
  330. CELEBREX [Suspect]
     Active Substance: CELECOXIB
     Indication: Rheumatoid arthritis
  331. INFLIXIMAB [Suspect]
     Active Substance: INFLIXIMAB
     Indication: Rheumatoid arthritis
  332. INFLIXIMAB [Suspect]
     Active Substance: INFLIXIMAB
  333. INFLIXIMAB [Suspect]
     Active Substance: INFLIXIMAB
     Route: 042
  334. INFLIXIMAB [Suspect]
     Active Substance: INFLIXIMAB
  335. INFLIXIMAB [Suspect]
     Active Substance: INFLIXIMAB
  336. INFLIXIMAB [Suspect]
     Active Substance: INFLIXIMAB
  337. CIMZIA [Suspect]
     Active Substance: CERTOLIZUMAB PEGOL
     Indication: Rheumatoid arthritis
     Route: 058
  338. CIMZIA [Suspect]
     Active Substance: CERTOLIZUMAB PEGOL
     Indication: Psoriasis
  339. CIMZIA [Suspect]
     Active Substance: CERTOLIZUMAB PEGOL
     Route: 058
  340. FOLIC ACID [Suspect]
     Active Substance: FOLIC ACID
     Indication: Rheumatoid arthritis
     Route: 058
  341. FOLIC ACID [Suspect]
     Active Substance: FOLIC ACID
  342. FOLIC ACID [Suspect]
     Active Substance: FOLIC ACID
  343. FOLIC ACID [Suspect]
     Active Substance: FOLIC ACID
  344. FOLIC ACID [Suspect]
     Active Substance: FOLIC ACID
  345. FOLIC ACID [Suspect]
     Active Substance: FOLIC ACID
     Route: 048
  346. FOLIC ACID [Suspect]
     Active Substance: FOLIC ACID
  347. FOLIC ACID [Suspect]
     Active Substance: FOLIC ACID
  348. FOLIC ACID [Suspect]
     Active Substance: FOLIC ACID
     Route: 048
  349. FOLIC ACID [Suspect]
     Active Substance: FOLIC ACID
  350. FOLIC ACID [Suspect]
     Active Substance: FOLIC ACID
  351. FOLIC ACID [Suspect]
     Active Substance: FOLIC ACID
     Route: 048
  352. FOLIC ACID [Suspect]
     Active Substance: FOLIC ACID
  353. FOLIC ACID [Suspect]
     Active Substance: FOLIC ACID
  354. FOLIC ACID [Suspect]
     Active Substance: FOLIC ACID
  355. FOLIC ACID [Suspect]
     Active Substance: FOLIC ACID
  356. FOLIC ACID [Suspect]
     Active Substance: FOLIC ACID
     Route: 048
  357. FOLIC ACID [Suspect]
     Active Substance: FOLIC ACID
     Route: 048
  358. FOLIC ACID [Suspect]
     Active Substance: FOLIC ACID
  359. FOLIC ACID [Suspect]
     Active Substance: FOLIC ACID
     Route: 048
  360. FOLIC ACID [Suspect]
     Active Substance: FOLIC ACID
  361. FOLIC ACID [Suspect]
     Active Substance: FOLIC ACID
     Route: 048
  362. FOLIC ACID [Suspect]
     Active Substance: FOLIC ACID
     Route: 058
  363. FOLIC ACID [Suspect]
     Active Substance: FOLIC ACID
  364. FOLIC ACID [Suspect]
     Active Substance: FOLIC ACID
  365. FOLIC ACID [Suspect]
     Active Substance: FOLIC ACID
     Route: 048
  366. FOLIC ACID [Suspect]
     Active Substance: FOLIC ACID
     Route: 048
  367. MYCOPHENOLATE MOFETIL [Suspect]
     Active Substance: MYCOPHENOLATE MOFETIL
     Indication: Product used for unknown indication
  368. MYCOPHENOLATE MOFETIL [Suspect]
     Active Substance: MYCOPHENOLATE MOFETIL
     Indication: Rheumatoid arthritis
  369. DICLOFENAC SODIUM [Suspect]
     Active Substance: DICLOFENAC SODIUM
     Indication: Product used for unknown indication
     Route: 048
  370. DICLOFENAC SODIUM [Suspect]
     Active Substance: DICLOFENAC SODIUM
  371. DICLOFENAC SODIUM [Suspect]
     Active Substance: DICLOFENAC SODIUM
     Dosage: 50 MG, QD (1 EVERY 1 DAY)
  372. DICLOFENAC SODIUM [Suspect]
     Active Substance: DICLOFENAC SODIUM
  373. DICLOFENAC SODIUM [Suspect]
     Active Substance: DICLOFENAC SODIUM
  374. DICLOFENAC SODIUM [Suspect]
     Active Substance: DICLOFENAC SODIUM
     Route: 050
  375. STELARA [Suspect]
     Active Substance: USTEKINUMAB
     Indication: Product used for unknown indication
     Route: 058
  376. STELARA [Suspect]
     Active Substance: USTEKINUMAB
     Indication: Condition aggravated
  377. STELARA [Suspect]
     Active Substance: USTEKINUMAB
     Indication: Psoriatic arthropathy
     Route: 058
  378. STELARA [Suspect]
     Active Substance: USTEKINUMAB
     Indication: Rheumatoid arthritis
  379. APREMILAST [Suspect]
     Active Substance: APREMILAST
     Indication: Product used for unknown indication
     Dosage: 3 MG, BID (3 MILLIGRAM, 2X/DAY (BID))
  380. USTEKINUMAB [Suspect]
     Active Substance: USTEKINUMAB
     Indication: Product used for unknown indication
  381. USTEKINUMAB [Suspect]
     Active Substance: USTEKINUMAB
     Route: 058
  382. USTEKINUMAB [Suspect]
     Active Substance: USTEKINUMAB
     Route: 042
  383. HUMIRA [Suspect]
     Active Substance: ADALIMUMAB
     Indication: Rheumatoid arthritis
     Route: 058
  384. HUMIRA [Suspect]
     Active Substance: ADALIMUMAB
     Indication: Psoriatic arthropathy
     Route: 058
  385. HUMIRA [Suspect]
     Active Substance: ADALIMUMAB
  386. HUMIRA [Suspect]
     Active Substance: ADALIMUMAB
     Route: 058
  387. HUMIRA [Suspect]
     Active Substance: ADALIMUMAB
     Route: 058
  388. HUMIRA [Suspect]
     Active Substance: ADALIMUMAB
     Route: 058
  389. HUMIRA [Suspect]
     Active Substance: ADALIMUMAB
     Route: 058
  390. HUMIRA [Suspect]
     Active Substance: ADALIMUMAB
     Route: 057
  391. PHTHALYLSULFATHIAZOLE [Suspect]
     Active Substance: PHTHALYLSULFATHIAZOLE
     Indication: Rheumatoid arthritis
     Route: 058
  392. PHTHALYLSULFATHIAZOLE [Suspect]
     Active Substance: PHTHALYLSULFATHIAZOLE
     Route: 058
  393. PHTHALYLSULFATHIAZOLE [Suspect]
     Active Substance: PHTHALYLSULFATHIAZOLE
     Route: 048
  394. PHTHALYLSULFATHIAZOLE [Suspect]
     Active Substance: PHTHALYLSULFATHIAZOLE
     Route: 067
  395. PHTHALYLSULFATHIAZOLE [Suspect]
     Active Substance: PHTHALYLSULFATHIAZOLE
     Route: 048
  396. PHTHALYLSULFATHIAZOLE [Suspect]
     Active Substance: PHTHALYLSULFATHIAZOLE
     Route: 016
  397. PHTHALYLSULFATHIAZOLE [Suspect]
     Active Substance: PHTHALYLSULFATHIAZOLE
  398. PHTHALYLSULFATHIAZOLE [Suspect]
     Active Substance: PHTHALYLSULFATHIAZOLE
  399. PHTHALYLSULFATHIAZOLE [Suspect]
     Active Substance: PHTHALYLSULFATHIAZOLE
  400. PHTHALYLSULFATHIAZOLE [Suspect]
     Active Substance: PHTHALYLSULFATHIAZOLE
     Dosage: 1000 MG, BID
     Route: 048
  401. PHTHALYLSULFATHIAZOLE [Suspect]
     Active Substance: PHTHALYLSULFATHIAZOLE
  402. PHTHALYLSULFATHIAZOLE [Suspect]
     Active Substance: PHTHALYLSULFATHIAZOLE
     Route: 048
  403. PHTHALYLSULFATHIAZOLE [Suspect]
     Active Substance: PHTHALYLSULFATHIAZOLE
     Route: 048
  404. SULFATHALIDINE [Suspect]
     Active Substance: PHTHALYLSULFATHIAZOLE
     Indication: Rheumatoid arthritis
  405. DOXYCYCLINE [Suspect]
     Active Substance: DOXYCYCLINE
     Indication: Product used for unknown indication
  406. LYRICA [Suspect]
     Active Substance: PREGABALIN
     Indication: Rheumatoid arthritis
     Route: 048
  407. KEVZARA [Suspect]
     Active Substance: SARILUMAB
     Indication: Rheumatoid arthritis
  408. OTEZLA [Suspect]
     Active Substance: APREMILAST
     Indication: Product used for unknown indication
     Route: 048
  409. OTEZLA [Suspect]
     Active Substance: APREMILAST
     Dosage: 3 MG, BID (1 EVERY 12 HOURS)
     Route: 048
  410. ENBREL [Suspect]
     Active Substance: ETANERCEPT
     Indication: Rheumatoid arthritis
  411. ENBREL [Suspect]
     Active Substance: ETANERCEPT
     Route: 058
  412. ENBREL [Suspect]
     Active Substance: ETANERCEPT
     Route: 058
  413. ENBREL [Suspect]
     Active Substance: ETANERCEPT
     Route: 058
  414. ENBREL [Suspect]
     Active Substance: ETANERCEPT
     Dosage: 50 MG, WE (1 EVERY 1 WEEK)
     Route: 058
  415. ENBREL [Suspect]
     Active Substance: ETANERCEPT
     Dosage: 25 MG, QD
     Route: 048
  416. ENBREL [Suspect]
     Active Substance: ETANERCEPT
     Dosage: 50 MG, WE
     Route: 058
  417. ENBREL [Suspect]
     Active Substance: ETANERCEPT
     Dosage: 50 MG, WE
     Route: 058
  418. ENBREL [Suspect]
     Active Substance: ETANERCEPT
     Route: 058
  419. ENBREL [Suspect]
     Active Substance: ETANERCEPT
     Dosage: UNK UNK, WE
  420. ENBREL [Suspect]
     Active Substance: ETANERCEPT
     Dosage: 50 MG, QD
     Route: 058
  421. ENBREL [Suspect]
     Active Substance: ETANERCEPT
  422. ENBREL [Suspect]
     Active Substance: ETANERCEPT
     Dosage: 50 MG, WE
     Route: 058
  423. ENBREL [Suspect]
     Active Substance: ETANERCEPT
  424. ENBREL [Suspect]
     Active Substance: ETANERCEPT
  425. ENBREL [Suspect]
     Active Substance: ETANERCEPT
     Dosage: UNK UNK, WE
     Route: 058
  426. FLUMETHASONE PIVALATE [Suspect]
     Active Substance: FLUMETHASONE PIVALATE
     Indication: Rheumatoid arthritis
     Route: 058
  427. FLUMETHASONE PIVALATE [Suspect]
     Active Substance: FLUMETHASONE PIVALATE
     Route: 003
  428. FLUMETHASONE PIVALATE [Suspect]
     Active Substance: FLUMETHASONE PIVALATE
  429. FLUMETHASONE [Suspect]
     Active Substance: FLUMETHASONE
     Indication: Product used for unknown indication
  430. CETIRIZINE HYDROCHLORIDE [Suspect]
     Active Substance: CETIRIZINE HYDROCHLORIDE
     Indication: Rheumatoid arthritis
  431. CETIRIZINE HYDROCHLORIDE [Suspect]
     Active Substance: CETIRIZINE HYDROCHLORIDE
  432. CETIRIZINE HYDROCHLORIDE [Suspect]
     Active Substance: CETIRIZINE HYDROCHLORIDE
     Route: 048
  433. CETIRIZINE HYDROCHLORIDE [Suspect]
     Active Substance: CETIRIZINE HYDROCHLORIDE
  434. CETIRIZINE HYDROCHLORIDE [Suspect]
     Active Substance: CETIRIZINE HYDROCHLORIDE
  435. CETIRIZINE HYDROCHLORIDE [Suspect]
     Active Substance: CETIRIZINE HYDROCHLORIDE
  436. CETIRIZINE HYDROCHLORIDE [Suspect]
     Active Substance: CETIRIZINE HYDROCHLORIDE
     Route: 048
  437. CETIRIZINE HYDROCHLORIDE [Suspect]
     Active Substance: CETIRIZINE HYDROCHLORIDE
  438. CETIRIZINE HYDROCHLORIDE [Suspect]
     Active Substance: CETIRIZINE HYDROCHLORIDE
     Route: 048
  439. CETIRIZINE HYDROCHLORIDE [Suspect]
     Active Substance: CETIRIZINE HYDROCHLORIDE
  440. PREDNISONE [Suspect]
     Active Substance: PREDNISONE
     Indication: Rheumatoid arthritis
  441. PREDNISONE [Suspect]
     Active Substance: PREDNISONE
  442. PREDNISONE [Suspect]
     Active Substance: PREDNISONE
     Route: 048
  443. PREDNISONE [Suspect]
     Active Substance: PREDNISONE
  444. PREDNISONE [Suspect]
     Active Substance: PREDNISONE
  445. PREDNISONE [Suspect]
     Active Substance: PREDNISONE
  446. PREDNISONE [Suspect]
     Active Substance: PREDNISONE
  447. PREDNISONE [Suspect]
     Active Substance: PREDNISONE
     Route: 048
  448. CORTISONE ACETATE [Suspect]
     Active Substance: CORTISONE ACETATE
     Indication: Rheumatoid arthritis
     Route: 048
  449. CORTISONE ACETATE [Suspect]
     Active Substance: CORTISONE ACETATE
     Indication: Systemic lupus erythematosus
     Route: 048
  450. CORTISONE ACETATE [Suspect]
     Active Substance: CORTISONE ACETATE
     Indication: Pemphigus
     Route: 048
  451. CORTISONE ACETATE [Suspect]
     Active Substance: CORTISONE ACETATE
     Indication: Product used for unknown indication
  452. TOPICORT [Suspect]
     Active Substance: DESOXIMETASONE
     Indication: Product used for unknown indication
     Route: 003
  453. TOPICORT [Suspect]
     Active Substance: DESOXIMETASONE
     Route: 048
  454. TOPICORT [Suspect]
     Active Substance: DESOXIMETASONE
     Route: 058
  455. TOPICORT [Suspect]
     Active Substance: DESOXIMETASONE
  456. NAPROXEN [Suspect]
     Active Substance: NAPROXEN
     Indication: Product used for unknown indication
  457. CETIRIZINE HYDROCHLORIDE\PSEUDOEPHEDRINE HYDROCHLORIDE [Suspect]
     Active Substance: CETIRIZINE HYDROCHLORIDE\PSEUDOEPHEDRINE HYDROCHLORIDE
     Indication: Rheumatoid arthritis
  458. CETIRIZINE HYDROCHLORIDE\PSEUDOEPHEDRINE HYDROCHLORIDE [Suspect]
     Active Substance: CETIRIZINE HYDROCHLORIDE\PSEUDOEPHEDRINE HYDROCHLORIDE
  459. CETIRIZINE HYDROCHLORIDE\PSEUDOEPHEDRINE HYDROCHLORIDE [Suspect]
     Active Substance: CETIRIZINE HYDROCHLORIDE\PSEUDOEPHEDRINE HYDROCHLORIDE
  460. CETIRIZINE HYDROCHLORIDE\PSEUDOEPHEDRINE HYDROCHLORIDE [Suspect]
     Active Substance: CETIRIZINE HYDROCHLORIDE\PSEUDOEPHEDRINE HYDROCHLORIDE
  461. CETIRIZINE HYDROCHLORIDE\PSEUDOEPHEDRINE HYDROCHLORIDE [Suspect]
     Active Substance: CETIRIZINE HYDROCHLORIDE\PSEUDOEPHEDRINE HYDROCHLORIDE
     Dosage: 10 MG, QD
  462. CETIRIZINE HYDROCHLORIDE\PSEUDOEPHEDRINE HYDROCHLORIDE [Suspect]
     Active Substance: CETIRIZINE HYDROCHLORIDE\PSEUDOEPHEDRINE HYDROCHLORIDE
  463. CETIRIZINE HYDROCHLORIDE\PSEUDOEPHEDRINE HYDROCHLORIDE [Suspect]
     Active Substance: CETIRIZINE HYDROCHLORIDE\PSEUDOEPHEDRINE HYDROCHLORIDE
     Dosage: 10 MG, QD
  464. METHOTREXATE [Suspect]
     Active Substance: METHOTREXATE
     Indication: Rheumatoid arthritis
     Dosage: 25 MG, WE
     Route: 013
  465. METHOTREXATE [Suspect]
     Active Substance: METHOTREXATE
     Route: 058
  466. DESOXIMETASONE [Suspect]
     Active Substance: DESOXIMETASONE
     Indication: Rheumatoid arthritis
  467. DESOXIMETASONE [Suspect]
     Active Substance: DESOXIMETASONE
     Route: 058
  468. DESOXIMETASONE [Suspect]
     Active Substance: DESOXIMETASONE
     Route: 048
  469. DESOXIMETASONE [Suspect]
     Active Substance: DESOXIMETASONE
     Dosage: UNK
  470. DESOXIMETASONE [Suspect]
     Active Substance: DESOXIMETASONE
     Route: 048
  471. DESOXIMETASONE [Suspect]
     Active Substance: DESOXIMETASONE
  472. DESOXIMETASONE [Suspect]
     Active Substance: DESOXIMETASONE
     Route: 048
  473. DESOXIMETASONE [Suspect]
     Active Substance: DESOXIMETASONE
  474. DESOXIMETASONE [Suspect]
     Active Substance: DESOXIMETASONE
     Route: 048
  475. DESOXIMETASONE [Suspect]
     Active Substance: DESOXIMETASONE
     Route: 048
  476. DESOXIMETASONE [Suspect]
     Active Substance: DESOXIMETASONE
     Route: 048
  477. DESOXIMETASONE [Suspect]
     Active Substance: DESOXIMETASONE
     Route: 003
  478. DESOXIMETASONE [Suspect]
     Active Substance: DESOXIMETASONE
     Route: 058
  479. DESOXIMETASONE [Suspect]
     Active Substance: DESOXIMETASONE
     Route: 048
  480. DESOXIMETASONE [Suspect]
     Active Substance: DESOXIMETASONE
     Route: 003
  481. DESOXIMETASONE [Suspect]
     Active Substance: DESOXIMETASONE
     Route: 058
  482. DESOXIMETASONE [Suspect]
     Active Substance: DESOXIMETASONE
  483. DESOXIMETASONE [Suspect]
     Active Substance: DESOXIMETASONE
     Route: 048
  484. DESOXIMETASONE [Suspect]
     Active Substance: DESOXIMETASONE
     Route: 003
  485. DESOXIMETASONE [Suspect]
     Active Substance: DESOXIMETASONE
     Route: 058
  486. DESOXIMETASONE [Suspect]
     Active Substance: DESOXIMETASONE
     Route: 042
  487. DESOXIMETASONE [Suspect]
     Active Substance: DESOXIMETASONE
  488. DESOXIMETASONE [Suspect]
     Active Substance: DESOXIMETASONE
  489. DESOXIMETASONE [Suspect]
     Active Substance: DESOXIMETASONE
  490. DESOXIMETASONE [Suspect]
     Active Substance: DESOXIMETASONE
  491. DESOXIMETASONE [Suspect]
     Active Substance: DESOXIMETASONE
  492. DESOXIMETASONE [Suspect]
     Active Substance: DESOXIMETASONE
  493. DESOXIMETASONE [Suspect]
     Active Substance: DESOXIMETASONE
     Route: 003
  494. DESOXIMETASONE [Suspect]
     Active Substance: DESOXIMETASONE
     Route: 042
  495. DESOXIMETASONE [Suspect]
     Active Substance: DESOXIMETASONE
     Route: 003
  496. DESOXIMETASONE [Suspect]
     Active Substance: DESOXIMETASONE
     Route: 048
  497. DESOXIMETASONE [Suspect]
     Active Substance: DESOXIMETASONE
     Route: 003
  498. DESOXIMETASONE [Suspect]
     Active Substance: DESOXIMETASONE
     Route: 058
  499. DESOXIMETASONE [Suspect]
     Active Substance: DESOXIMETASONE
     Route: 058
  500. DESOXIMETASONE [Suspect]
     Active Substance: DESOXIMETASONE
  501. DESOXIMETASONE [Suspect]
     Active Substance: DESOXIMETASONE
  502. DESOXIMETASONE [Suspect]
     Active Substance: DESOXIMETASONE
     Route: 048
  503. DESOXIMETASONE [Suspect]
     Active Substance: DESOXIMETASONE
  504. TOFACITINIB CITRATE [Suspect]
     Active Substance: TOFACITINIB CITRATE
     Indication: Psoriatic arthropathy
     Dosage: 5 MG, BID
  505. TOFACITINIB CITRATE [Suspect]
     Active Substance: TOFACITINIB CITRATE
     Indication: Rheumatoid arthritis
  506. TOFACITINIB CITRATE [Suspect]
     Active Substance: TOFACITINIB CITRATE
  507. TUMS ULTRA [Suspect]
     Active Substance: CALCIUM CARBONATE
     Indication: Product used for unknown indication
  508. TUMS ULTRA [Suspect]
     Active Substance: CALCIUM CARBONATE
     Indication: Rheumatoid arthritis
     Route: 016
  509. TOFACITINIB [Suspect]
     Active Substance: TOFACITINIB
     Indication: Product used for unknown indication
     Dosage: 5 MG, QD
  510. TOFACITINIB [Suspect]
     Active Substance: TOFACITINIB
     Dosage: 5 MG, WE
     Route: 048
  511. TOFACITINIB [Suspect]
     Active Substance: TOFACITINIB
     Dosage: 5 MG, WE
     Route: 048
  512. GOLIMUMAB [Suspect]
     Active Substance: GOLIMUMAB
     Indication: Prostatic specific antigen
  513. GOLIMUMAB [Suspect]
     Active Substance: GOLIMUMAB
     Indication: Rheumatoid arthritis
     Route: 058
  514. PANTOPRAZOLE SODIUM ANHYDROUS [Suspect]
     Active Substance: PANTOPRAZOLE SODIUM ANHYDROUS
     Indication: Product used for unknown indication
  515. DICLOFENAC SODIUM [Suspect]
     Active Substance: DICLOFENAC SODIUM
     Indication: Product used for unknown indication
  516. ACETAMINOPHEN\CODEINE PHOSPHATE [Suspect]
     Active Substance: ACETAMINOPHEN\CODEINE PHOSPHATE
     Indication: Product used for unknown indication
  517. APREPITANT [Suspect]
     Active Substance: APREPITANT
     Indication: Product used for unknown indication
     Route: 048
  518. APREPITANT [Suspect]
     Active Substance: APREPITANT
  519. APREPITANT [Suspect]
     Active Substance: APREPITANT
  520. APREPITANT [Suspect]
     Active Substance: APREPITANT
  521. APREPITANT [Suspect]
     Active Substance: APREPITANT
  522. APREPITANT [Suspect]
     Active Substance: APREPITANT
     Route: 048
  523. APREPITANT [Suspect]
     Active Substance: APREPITANT
     Route: 042
  524. APREPITANT [Suspect]
     Active Substance: APREPITANT
     Route: 042
  525. ASACOL [Suspect]
     Active Substance: MESALAMINE
     Indication: Product used for unknown indication
  526. DILTIAZEM HYDROCHLORIDE [Suspect]
     Active Substance: DILTIAZEM HYDROCHLORIDE
     Indication: Product used for unknown indication
  527. DILTIAZEM HYDROCHLORIDE [Suspect]
     Active Substance: DILTIAZEM HYDROCHLORIDE
     Route: 042
  528. CODEINE [Suspect]
     Active Substance: CODEINE
     Indication: Product used for unknown indication
  529. SOLU-MEDROL [Suspect]
     Active Substance: METHYLPREDNISOLONE SODIUM SUCCINATE
     Indication: Product used for unknown indication
  530. ENTYVIO [Suspect]
     Active Substance: VEDOLIZUMAB
     Indication: Product used for unknown indication
  531. ENTYVIO [Suspect]
     Active Substance: VEDOLIZUMAB
  532. ENTYVIO [Suspect]
     Active Substance: VEDOLIZUMAB
  533. FLUMETHASONE [Suspect]
     Active Substance: FLUMETHASONE
     Indication: Rheumatoid arthritis
     Route: 058
  534. VOLTAREN [Suspect]
     Active Substance: DICLOFENAC SODIUM
     Indication: Rheumatoid arthritis
  535. DICLOFENAC [Suspect]
     Active Substance: DICLOFENAC
     Indication: Product used for unknown indication
  536. DICLOFENAC POTASSIUM [Suspect]
     Active Substance: DICLOFENAC POTASSIUM
     Indication: Rheumatoid arthritis
     Route: 048
  537. NAPROXEN [Suspect]
     Active Substance: NAPROXEN
     Indication: Rheumatoid arthritis
  538. NEOMYCIN [Suspect]
     Active Substance: NEOMYCIN
     Indication: Product used for unknown indication
     Route: 048
  539. HYDROCORTISONE [Suspect]
     Active Substance: HYDROCORTISONE
     Indication: Rheumatoid arthritis
     Route: 048
  540. HYDROCORTISONE [Suspect]
     Active Substance: HYDROCORTISONE
     Route: 048
  541. HYDROCORTISONE [Suspect]
     Active Substance: HYDROCORTISONE
     Route: 058
  542. HYDROCORTISONE [Suspect]
     Active Substance: HYDROCORTISONE
     Route: 048
  543. HYDROCORTISONE [Suspect]
     Active Substance: HYDROCORTISONE
  544. HYDROCORTISONE [Suspect]
     Active Substance: HYDROCORTISONE
     Route: 003

REACTIONS (106)
  - Coeliac disease [Fatal]
  - Night sweats [Fatal]
  - Hypersensitivity [Fatal]
  - Infusion site reaction [Fatal]
  - Hepatic enzyme increased [Not Recovered/Not Resolved]
  - Asthma [Fatal]
  - Condition aggravated [Not Recovered/Not Resolved]
  - Nail disorder [Fatal]
  - Adverse drug reaction [Not Recovered/Not Resolved]
  - Onychomadesis [Fatal]
  - Abdominal pain upper [Fatal]
  - Pain in extremity [Fatal]
  - Anti-cyclic citrullinated peptide antibody positive [Fatal]
  - Drug-induced liver injury [Fatal]
  - Grip strength decreased [Unknown]
  - Product label confusion [Fatal]
  - Product use issue [Not Recovered/Not Resolved]
  - Gait inability [Fatal]
  - Product use in unapproved indication [Unknown]
  - Contusion [Fatal]
  - Psoriasis [Unknown]
  - Neck pain [Fatal]
  - Treatment noncompliance [Not Recovered/Not Resolved]
  - Hypertension [Not Recovered/Not Resolved]
  - Dyspepsia [Fatal]
  - Arthropathy [Not Recovered/Not Resolved]
  - Back injury [Fatal]
  - Wound infection [Unknown]
  - C-reactive protein increased [Fatal]
  - Treatment failure [Not Recovered/Not Resolved]
  - Abdominal distension [Fatal]
  - Rash [Fatal]
  - Weight decreased [Unknown]
  - Type 2 diabetes mellitus [Not Recovered/Not Resolved]
  - Delirium [Unknown]
  - Alopecia [Fatal]
  - Muscular weakness [Unknown]
  - Pericarditis [Not Recovered/Not Resolved]
  - Discomfort [Fatal]
  - Rheumatoid arthritis [Fatal]
  - Hypoaesthesia [Not Recovered/Not Resolved]
  - Joint range of motion decreased [Not Recovered/Not Resolved]
  - Maternal exposure during pregnancy [Unknown]
  - Fibromyalgia [Fatal]
  - Joint swelling [Fatal]
  - Adjustment disorder with depressed mood [Unknown]
  - Blister [Fatal]
  - Adverse event [Not Recovered/Not Resolved]
  - Amnesia [Unknown]
  - Synovitis [Fatal]
  - Rheumatoid factor positive [Fatal]
  - Drug hypersensitivity [Not Recovered/Not Resolved]
  - Depression [Not Recovered/Not Resolved]
  - Nausea [Fatal]
  - Exposure during pregnancy [Not Recovered/Not Resolved]
  - Injury [Unknown]
  - Diarrhoea [Fatal]
  - Drug intolerance [Not Recovered/Not Resolved]
  - Psoriatic arthropathy [Not Recovered/Not Resolved]
  - Hand deformity [Not Recovered/Not Resolved]
  - Systemic lupus erythematosus [Not Recovered/Not Resolved]
  - Swollen joint count increased [Not Recovered/Not Resolved]
  - Wound [Not Recovered/Not Resolved]
  - General physical health deterioration [Not Recovered/Not Resolved]
  - Disability [Not Recovered/Not Resolved]
  - Live birth [Unknown]
  - Dizziness [Fatal]
  - Sleep disorder [Fatal]
  - Therapy non-responder [Unknown]
  - Pain [Fatal]
  - Dyspnoea [Unknown]
  - Malaise [Not Recovered/Not Resolved]
  - Fatigue [Not Recovered/Not Resolved]
  - Arthralgia [Fatal]
  - Pemphigus [Not Recovered/Not Resolved]
  - Therapeutic product effect decreased [Not Recovered/Not Resolved]
  - Infusion related reaction [Fatal]
  - Abdominal discomfort [Not Recovered/Not Resolved]
  - Chest pain [Fatal]
  - Oedema [Unknown]
  - Walking aid user [Unknown]
  - Headache [Not Recovered/Not Resolved]
  - Breast cancer stage III [Not Recovered/Not Resolved]
  - Prescribed overdose [Unknown]
  - Decreased appetite [Not Recovered/Not Resolved]
  - Helicobacter infection [Not Recovered/Not Resolved]
  - Drug ineffective [Not Recovered/Not Resolved]
  - Gait disturbance [Not Recovered/Not Resolved]
  - Dislocation of vertebra [Unknown]
  - Anxiety [Unknown]
  - Duodenal ulcer perforation [Fatal]
  - Contraindicated product administered [Not Recovered/Not Resolved]
  - Musculoskeletal stiffness [Fatal]
  - Abdominal pain [Not Recovered/Not Resolved]
  - Glossodynia [Not Recovered/Not Resolved]
  - Mobility decreased [Not Recovered/Not Resolved]
  - Intentional product use issue [Unknown]
  - Memory impairment [Not Recovered/Not Resolved]
  - Infection [Unknown]
  - Vomiting [Unknown]
  - Blood cholesterol increased [Not Recovered/Not Resolved]
  - Off label use [Fatal]
  - Rheumatic fever [Not Recovered/Not Resolved]
  - Liver injury [Not Recovered/Not Resolved]
  - Wheezing [Fatal]
  - Swelling [Not Recovered/Not Resolved]
